FAERS Safety Report 6835427-1 (Version None)
Quarter: 2010Q3

REPORT INFORMATION
  Report Type: 
  Country: None (occurrence: None)
  Receive Date: 20100711
  Receipt Date: 20100711
  Transmission Date: 20110219
  Serious: Yes (Life-Threatening)
  Sender: FDA-Public Use
  Company Number: None

PATIENT
  Age: 73 Year
  Sex: Male
  Weight: 113.3993 kg

DRUGS (1)
  1. TYLENOL-500 [Suspect]
     Indication: HEADACHE
     Dosage: 100 MG AS DIRECTED PO
     Route: 048
     Dates: start: 20100704, end: 20100705

REACTIONS (1)
  - MALAISE [None]
